FAERS Safety Report 7397118-0 (Version None)
Quarter: 2011Q2

REPORT INFORMATION
  Report Type: 
  Country: None (occurrence: None)
  Receive Date: 20110406
  Receipt Date: 20110329
  Transmission Date: 20111010
  Serious: Yes (Life-Threatening)
  Sender: FDA-Public Use
  Company Number: A0921312A

PATIENT
  Sex: Female

DRUGS (2)
  1. CAPTOPRIL [Concomitant]
  2. SEROXAT [Suspect]
     Indication: ANXIETY DISORDER
     Dosage: 12.5MGD PER DAY
     Route: 048
     Dates: start: 20110201

REACTIONS (3)
  - DRY MOUTH [None]
  - HYPERTENSION [None]
  - HYPERTENSIVE EMERGENCY [None]
